FAERS Safety Report 16005927 (Version 1)
Quarter: 2019Q1

REPORT INFORMATION
  Report Type: Spontaneous
  Country: US (occurrence: US)
  Receive Date: 20190226
  Receipt Date: 20190226
  Transmission Date: 20190418
  Serious: Yes (Other)
  Sender: FDA-Public Use
  Company Number: US-MYLANLABS-2019M1017592

PATIENT
  Age: 79 Year
  Sex: Female

DRUGS (3)
  1. METHIMAZOLE. [Suspect]
     Active Substance: METHIMAZOLE
     Indication: HYPERTHYROIDISM
     Dosage: 7.5 MILLIGRAM, QD
  2. METHIMAZOLE. [Suspect]
     Active Substance: METHIMAZOLE
     Dosage: 30 MILLIGRAM, QD
  3. METHIMAZOLE. [Suspect]
     Active Substance: METHIMAZOLE
     Dosage: 20 MILLIGRAM, BID

REACTIONS (1)
  - Thyroid cancer [Unknown]
